FAERS Safety Report 4641585-X (Version None)
Quarter: 2005Q2

REPORT INFORMATION
  Report Type: 
  Country: None (occurrence: None)
  Receive Date: 20050420
  Receipt Date: 20050406
  Transmission Date: 20051028
  Serious: Yes (Other)
  Sender: FDA-Public Use
  Company Number: JP_050406302

PATIENT

DRUGS (2)
  1. GEMZAR [Suspect]
     Indication: TRANSITIONAL CELL CARCINOMA
     Dosage: 1000 MG/M2, OTHER
     Route: 050
  2. PACLITAXEL [Concomitant]

REACTIONS (2)
  - HAEMATOTOXICITY [None]
  - PLATELET COUNT DECREASED [None]
